FAERS Safety Report 13167630 (Version 1)
Quarter: 2017Q1

REPORT INFORMATION
  Report Type: Spontaneous
  Country: IT (occurrence: IT)
  Receive Date: 20170131
  Receipt Date: 20170131
  Transmission Date: 20170428
  Serious: Yes (Other)
  Sender: FDA-Public Use
  Company Number: IT-KADMON PHARMACEUTICALS, LLC-KAD201701-000227

PATIENT
  Age: 64 Year
  Sex: Male

DRUGS (7)
  1. LANTUS 100 IU/ML [Concomitant]
     Indication: DIABETES MELLITUS
     Dosage: SOLUTION FOR INJECTION
     Route: 058
  2. HUMALOG 40 IU/ML [Concomitant]
     Indication: DIABETES MELLITUS
     Dosage: SOLUTION FOR INJECTION
  3. DACLATASVIR. [Suspect]
     Active Substance: DACLATASVIR
     Indication: HEPATITIS C
     Route: 048
     Dates: start: 20160204, end: 20160315
  4. SOFOSBUVIR [Suspect]
     Active Substance: SOFOSBUVIR
     Indication: HEPATITIS C
     Route: 048
     Dates: start: 20160204, end: 20160315
  5. ATORVASTATIN [Concomitant]
     Active Substance: ATORVASTATIN
     Route: 048
     Dates: start: 20150203, end: 20170119
  6. RIBAVIRIN. [Suspect]
     Active Substance: RIBAVIRIN
     Indication: HEPATITIS C
     Dosage: TABLET
     Route: 048
     Dates: start: 20160204, end: 20160315
  7. ATENOLOL. [Concomitant]
     Active Substance: ATENOLOL
     Route: 048
     Dates: start: 20150203, end: 20170119

REACTIONS (1)
  - Optic ischaemic neuropathy [Recovered/Resolved]

NARRATIVE: CASE EVENT DATE: 20160315
